FAERS Safety Report 8585879-4 (Version None)
Quarter: 2012Q3

REPORT INFORMATION
  Report Type: 
  Country: None (occurrence: None)
  Receive Date: 20120802
  Receipt Date: 20120802
  Transmission Date: 20120928
  Serious: Yes (Disabling, Other)
  Sender: FDA-Public Use
  Company Number: None

PATIENT
  Age: 31 Year
  Sex: Female
  Weight: 53.5244 kg

DRUGS (1)
  1. DEPO-PROVERA [Suspect]
     Indication: CONTRACEPTION
     Dosage: EVERY 3 MONTHS IM
     Route: 030
     Dates: start: 20120320, end: 20120627

REACTIONS (10)
  - NERVOUSNESS [None]
  - MUSCULOSKELETAL DISORDER [None]
  - PARAESTHESIA [None]
  - HEADACHE [None]
  - PAIN IN EXTREMITY [None]
  - BACK PAIN [None]
  - MUSCULOSKELETAL PAIN [None]
  - ANXIETY [None]
  - ARTHRALGIA [None]
  - HYPOAESTHESIA [None]
